FAERS Safety Report 17933099 (Version 4)
Quarter: 2020Q3

REPORT INFORMATION
  Report Type: Spontaneous
  Country: US (occurrence: US)
  Receive Date: 20200624
  Receipt Date: 20200922
  Transmission Date: 20201103
  Serious: Yes (Hospitalization, Other)
  Sender: FDA-Public Use
  Company Number: US-BRISTOL-MYERS SQUIBB COMPANY-BMS-2020-046810

PATIENT
  Sex: Female
  Weight: 47.17 kg

DRUGS (3)
  1. TRIAMCINOLONE ACETONIDE. [Suspect]
     Active Substance: TRIAMCINOLONE ACETONIDE
     Indication: SCIATICA
     Dosage: 8 MILLILITER
     Route: 008
     Dates: start: 20200311
  2. TRIAMCINOLONE ACETONIDE. [Suspect]
     Active Substance: TRIAMCINOLONE ACETONIDE
     Dosage: 6 MILLILITER
     Route: 008
  3. BUPIVACAINE. [Suspect]
     Active Substance: BUPIVACAINE
     Indication: PRODUCT USED FOR UNKNOWN INDICATION
     Dosage: 4 MILLILITER
     Route: 065

REACTIONS (22)
  - Weight decreased [Unknown]
  - Muscular weakness [Unknown]
  - General physical health deterioration [Not Recovered/Not Resolved]
  - Neuralgia [Unknown]
  - Cognitive disorder [Unknown]
  - Vomiting [Unknown]
  - Eye pain [Not Recovered/Not Resolved]
  - Small fibre neuropathy [Unknown]
  - Central pain syndrome [Unknown]
  - Intentional product use issue [Unknown]
  - Paralysis [Unknown]
  - Arachnoiditis [Unknown]
  - Feeding disorder [Unknown]
  - Tremor [Unknown]
  - Muscle spasms [Unknown]
  - Seizure [Unknown]
  - Nausea [Unknown]
  - Pain [Unknown]
  - Hypoaesthesia [Unknown]
  - Urinary incontinence [Unknown]
  - Mast cell activation syndrome [Unknown]
  - Aphonia [Unknown]
